FAERS Safety Report 7002748-1 (Version None)
Quarter: 2010Q3

REPORT INFORMATION
  Report Type: 
  Country: None (occurrence: None)
  Receive Date: 20100920
  Receipt Date: 20100908
  Transmission Date: 20110219
  Serious: Yes (Disabling, Other)
  Sender: FDA-Public Use
  Company Number: US-CELGENEUS-163-21880-10071468

PATIENT
  Sex: Female
  Weight: 45.4 kg

DRUGS (5)
  1. REVLIMID [Suspect]
     Indication: MULTIPLE MYELOMA
     Route: 048
     Dates: start: 20060309, end: 20080101
  2. REVLIMID [Suspect]
     Route: 048
     Dates: start: 20080701, end: 20080101
  3. REVLIMID [Suspect]
     Route: 048
     Dates: start: 20081101
  4. DECADRON [Concomitant]
     Route: 048
     Dates: start: 20070101
  5. VITAMIN B-12 [Concomitant]
     Indication: VITAMIN B12 DEFICIENCY
     Route: 058
     Dates: start: 20090401

REACTIONS (3)
  - GINGIVAL INFECTION [None]
  - OSTEONECROSIS OF JAW [None]
  - TOOTH EXTRACTION [None]
